FAERS Safety Report 9726393 (Version 2)
Quarter: 2013Q4

REPORT INFORMATION
  Report Type: Spontaneous
  Country: CA (occurrence: CA)
  Receive Date: 20131203
  Receipt Date: 20131203
  Transmission Date: 20140711
  Serious: Yes (Other)
  Sender: FDA-Public Use
  Company Number: CA-BAYER-2013-142528

PATIENT
  Sex: Female

DRUGS (1)
  1. CANESTEN COMBI-PAK COMFORTAB 3 [Suspect]
     Indication: FUNGAL INFECTION

REACTIONS (5)
  - Injury [None]
  - Traumatic haemorrhage [None]
  - Emotional distress [None]
  - Pain [None]
  - Product quality issue [None]
